FAERS Safety Report 17061165 (Version 3)
Quarter: 2021Q3

REPORT INFORMATION
  Report Type: Spontaneous
  Country: US (occurrence: US)
  Receive Date: 20191121
  Receipt Date: 20210924
  Transmission Date: 20211014
  Serious: Yes (Hospitalization, Other)
  Sender: FDA-Public Use
  Company Number: US-SA-2019SA323063

PATIENT
  Age: 66 Year
  Sex: Female

DRUGS (5)
  1. TOUJEO [Suspect]
     Active Substance: INSULIN GLARGINE
     Indication: TYPE 2 DIABETES MELLITUS
     Dosage: 45 U, QD
     Route: 065
  2. OZEMPIC [Concomitant]
     Active Substance: SEMAGLUTIDE
     Dosage: ONCE A WEEK
     Route: 065
  3. DILAUDID [Concomitant]
     Active Substance: HYDROMORPHONE HYDROCHLORIDE
     Indication: ABDOMINAL PAIN UPPER
     Dosage: UNK
     Route: 065
  4. TOUJEO [Suspect]
     Active Substance: INSULIN GLARGINE
     Dosage: 42 IU
     Route: 065
     Dates: start: 2006
  5. INSULIN LISPRO [Suspect]
     Active Substance: INSULIN LISPRO
     Dosage: UNK, Q8H
     Route: 065

REACTIONS (10)
  - Chronic kidney disease [Unknown]
  - Hepatic enzyme decreased [Unknown]
  - Wrong technique in product usage process [Unknown]
  - Abdominal pain upper [Unknown]
  - Blood urine present [Unknown]
  - Confusional state [Unknown]
  - Nephropathy [Unknown]
  - Feeling abnormal [Unknown]
  - Weight decreased [Unknown]
  - Pancreatitis acute [Unknown]

NARRATIVE: CASE EVENT DATE: 20210410
